FAERS Safety Report 10701841 (Version 2)
Quarter: 2015Q1

REPORT INFORMATION
  Report Type: Spontaneous
  Country: US (occurrence: US)
  Receive Date: 20150109
  Receipt Date: 20150109
  Transmission Date: 20150721
  Serious: No
  Sender: FDA-Public Use
  Company Number: US-GLAXOSMITHKLINE-A0969326A

PATIENT
  Sex: Female

DRUGS (19)
  1. NEXIUM [Concomitant]
     Active Substance: ESOMEPRAZOLE MAGNESIUM
  2. FISH OIL [Concomitant]
     Active Substance: FISH OIL
  3. DILTIAZEM [Concomitant]
     Active Substance: DILTIAZEM
  4. DIAZEPAM. [Concomitant]
     Active Substance: DIAZEPAM
  5. VITAMIN B12 [Concomitant]
     Active Substance: CYANOCOBALAMIN
  6. ALLEGRA [Concomitant]
     Active Substance: FEXOFENADINE HYDROCHLORIDE
  7. PRAVASTATIN [Concomitant]
     Active Substance: PRAVASTATIN\PRAVASTATIN SODIUM
  8. BONIVA [Concomitant]
     Active Substance: IBANDRONATE SODIUM
  9. ISOSORBIDE [Concomitant]
     Active Substance: ISOSORBIDE
  10. MAXAIR [Concomitant]
     Active Substance: PIRBUTEROL ACETATE
  11. MULTI VITAMIN [Concomitant]
     Active Substance: VITAMINS
  12. ADVAIR DISKUS [Suspect]
     Active Substance: FLUTICASONE PROPIONATE\SALMETEROL XINAFOATE
     Indication: ASTHMA
     Dosage: 500/50
     Route: 055
  13. QUINAPRIL [Concomitant]
     Active Substance: QUINAPRIL\QUINAPRIL HYDROCHLORIDE
  14. COENZYME Q10 [Concomitant]
     Active Substance: UBIDECARENONE
  15. SINGULAIR [Concomitant]
     Active Substance: MONTELUKAST SODIUM
  16. VITAMIN D [Concomitant]
     Active Substance: CHOLECALCIFEROL
  17. CALCIUM VITAMINE D3 TEVA [Concomitant]
  18. BAYER ASPIRIN [Concomitant]
     Active Substance: ASPIRIN
  19. FLONASE [Concomitant]
     Active Substance: FLUTICASONE PROPIONATE

REACTIONS (3)
  - Dyspnoea [Unknown]
  - Product quality issue [Unknown]
  - Malaise [Unknown]
